FAERS Safety Report 5067827-7 (Version None)
Quarter: 2006Q3

REPORT INFORMATION
  Report Type: 
  Country: None (occurrence: None)
  Receive Date: 20060717
  Receipt Date: 20050907
  Transmission Date: 20061208
  Serious: Yes (Other)
  Sender: FDA-Public Use
  Company Number: 2005-09-0474

PATIENT
  Sex: Female

DRUGS (1)
  1. INTEGRILIN [Suspect]
     Dosage: INTRAVENOUS
     Route: 042
     Dates: start: 20050907, end: 20050907

REACTIONS (1)
  - CEREBROVASCULAR ACCIDENT [None]
